FAERS Safety Report 25585001 (Version 4)
Quarter: 2025Q4

REPORT INFORMATION
  Report Type: Spontaneous
  Country: AR (occurrence: AR)
  Receive Date: 20250721
  Receipt Date: 20251209
  Transmission Date: 20260118
  Serious: Yes (Other)
  Sender: SANDOZ
  Company Number: AR-002147023-NVSC2025AR042997

PATIENT
  Age: 78 Year
  Sex: Female

DRUGS (10)
  1. FULVESTRANT [Suspect]
     Active Substance: FULVESTRANT
     Indication: Breast cancer metastatic
     Dosage: 2 DF, QMO, 2 DOSAGE FORM, QMO, AMPOULE
     Route: 065
     Dates: start: 20250307
  2. FULVESTRANT [Suspect]
     Active Substance: FULVESTRANT
     Indication: Breast cancer
     Dosage: 500 MG, QMO, AMPOULE
     Route: 030
  3. KISQALI [Suspect]
     Active Substance: RIBOCICLIB SUCCINATE
     Dosage: 2 DF, QD(2 DOSAGE FORM, QD (400 MG)
     Route: 048
  4. KISQALI [Suspect]
     Active Substance: RIBOCICLIB SUCCINATE
     Dosage: 2 DF, QD, 2 DOSAGE FORM, QD (400 MG)
     Route: 048
  5. KISQALI [Suspect]
     Active Substance: RIBOCICLIB SUCCINATE
     Dosage: 200 MG, QD
     Route: 048
  6. KISQALI [Suspect]
     Active Substance: RIBOCICLIB SUCCINATE
     Dosage: 200 MG COMP X 63
     Route: 065
  7. KISQALI [Suspect]
     Active Substance: RIBOCICLIB SUCCINATE
     Indication: Breast cancer metastatic
     Dosage: 400 MG, QD
     Route: 048
     Dates: start: 20250307
  8. KISQALI [Suspect]
     Active Substance: RIBOCICLIB SUCCINATE
     Dosage: 600 MG, QD
     Route: 048
  9. KISQALI [Suspect]
     Active Substance: RIBOCICLIB SUCCINATE
     Dosage: UNK
     Route: 065
  10. Polper b12 [Concomitant]
     Indication: Product used for unknown indication
     Dosage: UNK
     Route: 065

REACTIONS (17)
  - Myocardial infarction [Unknown]
  - Coronary artery occlusion [Unknown]
  - Myocardial ischaemia [Unknown]
  - Photosensitivity reaction [Unknown]
  - Skin toxicity [Unknown]
  - Arterial occlusive disease [Unknown]
  - Illness [Unknown]
  - Dysstasia [Unknown]
  - Malaise [Unknown]
  - Fall [Unknown]
  - Hypotension [Unknown]
  - Depressed mood [Unknown]
  - White blood cell count decreased [Unknown]
  - Dizziness [Unknown]
  - Red blood cell count decreased [Unknown]
  - Fatigue [Unknown]
  - Platelet count decreased [Unknown]

NARRATIVE: CASE EVENT DATE: 20250301
